FAERS Safety Report 7153347-2 (Version None)
Quarter: 2010Q4

REPORT INFORMATION
  Report Type: 
  Country: None (occurrence: None)
  Receive Date: 20101124
  Receipt Date: 20101110
  Transmission Date: 20110411
  Serious: Yes (Hospitalization)
  Sender: FDA-Public Use
  Company Number: 2010004895

PATIENT
  Age: 78 Year
  Sex: Female

DRUGS (7)
  1. TARCEVA [Suspect]
     Indication: LUNG NEOPLASM MALIGNANT
     Dosage: (150 MG, EVERY DAY), ORAL
     Route: 048
     Dates: start: 20101102
  2. COUMADIN [Concomitant]
  3. ASPIRIN ADULT (TABLET) [Concomitant]
  4. ATENOLOL [Concomitant]
  5. LISINOPRIL [Concomitant]
  6. ALENDRONATE (TABLET) [Concomitant]
  7. CENTRUM SILVER (CENTRUM SILVER) (TABLET) [Concomitant]

REACTIONS (2)
  - BLOOD DISORDER [None]
  - DIVERTICULUM [None]
